FAERS Safety Report 4851086-1 (Version None)
Quarter: 2005Q4

REPORT INFORMATION
  Report Type: 
  Country: None (occurrence: None)
  Receive Date: 20051212
  Receipt Date: 20051201
  Transmission Date: 20060501
  Serious: Yes (Hospitalization)
  Sender: FDA-Public Use
  Company Number: US-JNJFOC-20051200770

PATIENT
  Sex: Female
  Weight: 83.92 kg

DRUGS (13)
  1. INFLIXIMAB [Suspect]
     Indication: RHEUMATOID ARTHRITIS
     Route: 042
  2. AMITRIPTYLINE HCL [Concomitant]
  3. CYCLOBENZAPRINE [Concomitant]
  4. NORVASC [Concomitant]
  5. POTASSIUM [Concomitant]
  6. PREDNISONE [Concomitant]
  7. VICODIN [Concomitant]
  8. VICODIN [Concomitant]
  9. ZOLOFT [Concomitant]
  10. PROTONIX [Concomitant]
  11. TOPAMAX [Concomitant]
  12. HUMIRA [Concomitant]
  13. LUNESTA [Concomitant]

REACTIONS (1)
  - THYROIDECTOMY [None]
